FAERS Safety Report 21928884 (Version 2)
Quarter: 2023Q1

REPORT INFORMATION
  Report Type: Report from Study
  Country: JP (occurrence: JP)
  Receive Date: 20230131
  Receipt Date: 20230201
  Transmission Date: 20230418
  Serious: Yes (Other)
  Sender: FDA-Public Use
  Company Number: JP-ONO-2023JP001593

PATIENT
  Age: 70 Year
  Sex: Female
  Weight: 51.8 kg

DRUGS (18)
  1. ETELCALCETIDE [Suspect]
     Active Substance: ETELCALCETIDE
     Indication: Hyperparathyroidism secondary
     Dosage: 5 MILLIGRAM, Q56H
     Route: 010
     Dates: start: 20180924
  2. OXAROL [Concomitant]
     Active Substance: MAXACALCITOL
     Dosage: 2.5 MICROGRAM, Q84H
     Route: 065
  3. MIRCERA [Concomitant]
     Active Substance: METHOXY POLYETHYLENE GLYCOL-EPOETIN BETA
     Dosage: 100 MICROGRAM, Q4WK
     Route: 065
     Dates: end: 20181022
  4. MIRCERA [Concomitant]
     Active Substance: METHOXY POLYETHYLENE GLYCOL-EPOETIN BETA
     Dosage: 75 MUG, Q4W
     Dates: start: 20181126, end: 20190128
  5. MIRCERA [Concomitant]
     Active Substance: METHOXY POLYETHYLENE GLYCOL-EPOETIN BETA
     Dosage: 100 MUG, Q4W
     Dates: start: 20190225, end: 20200224
  6. MIRCERA [Concomitant]
     Active Substance: METHOXY POLYETHYLENE GLYCOL-EPOETIN BETA
     Dosage: 150 MUG, Q4W
     Dates: start: 20200323, end: 20200427
  7. MIRCERA [Concomitant]
     Active Substance: METHOXY POLYETHYLENE GLYCOL-EPOETIN BETA
     Dosage: 200 MUG, Q4W
     Dates: start: 20200525, end: 20200525
  8. MIRCERA [Concomitant]
     Active Substance: METHOXY POLYETHYLENE GLYCOL-EPOETIN BETA
     Dosage: 150 MUG, Q4W
     Dates: start: 20200622, end: 20210628
  9. MIRCERA [Concomitant]
     Active Substance: METHOXY POLYETHYLENE GLYCOL-EPOETIN BETA
     Dosage: 200 MUG, Q4W
     Dates: start: 20210726, end: 20220425
  10. MIRCERA [Concomitant]
     Active Substance: METHOXY POLYETHYLENE GLYCOL-EPOETIN BETA
     Dosage: 250 MUG, Q4W
     Dates: start: 20220523
  11. Fesin [Concomitant]
     Dosage: 40 MILLIGRAM, QWK
     Route: 065
     Dates: end: 20181015
  12. Fesin [Concomitant]
     Dosage: 40 MILLIGRAM, QWK
     Dates: start: 20200323, end: 20200615
  13. Fesin [Concomitant]
     Dosage: 40 MILLIGRAM, QWK
     Dates: start: 20210628, end: 20210920
  14. Fesin [Concomitant]
     Dosage: 40 MILLIGRAM, QWK
     Dates: start: 20220321, end: 20220613
  15. Fesin [Concomitant]
     Dosage: 40 MILLIGRAM, QWK
     Dates: start: 20221017
  16. INSULIN NOS [Concomitant]
     Active Substance: INSULIN NOS
     Dosage: UNK
     Route: 065
  17. CALTAN [Concomitant]
     Active Substance: CALCIUM CARBONATE
     Dosage: 1500 MILLIGRAM, QD
     Route: 048
  18. FOSRENOL [Concomitant]
     Active Substance: LANTHANUM CARBONATE
     Dosage: 1500 MILLIGRAM, QD
     Route: 048
     Dates: end: 20200217

REACTIONS (3)
  - Loss of control of legs [Unknown]
  - Contusion [Recovered/Resolved]
  - Tenosynovitis [Recovered/Resolved]

NARRATIVE: CASE EVENT DATE: 20220401
